FAERS Safety Report 4699415-6 (Version None)
Quarter: 2005Q2

REPORT INFORMATION
  Report Type: 
  Country: None (occurrence: None)
  Receive Date: 20050624
  Receipt Date: 20050310
  Transmission Date: 20051028
  Serious: Yes (Disabling, Other)
  Sender: FDA-Public Use
  Company Number: US-MERCK-0503USA02036

PATIENT
  Age: 53 Year
  Sex: Female
  Weight: 49 kg

DRUGS (3)
  1. VIOXX [Suspect]
     Indication: ARTHRITIS
     Route: 048
     Dates: start: 20021201, end: 20030301
  2. LIPITOR [Concomitant]
     Route: 065
     Dates: start: 19960101
  3. ASPIRIN [Concomitant]
     Route: 065
     Dates: start: 19720101

REACTIONS (18)
  - ACTINIC KERATOSIS [None]
  - ANAEMIA [None]
  - AZOTAEMIA [None]
  - CAROTID ARTERY STENOSIS [None]
  - CARPAL TUNNEL SYNDROME [None]
  - CEREBROVASCULAR ACCIDENT [None]
  - DERMAL CYST [None]
  - DIABETIC RETINOPATHY [None]
  - DUPUYTREN'S CONTRACTURE [None]
  - HYPERTENSION [None]
  - KYPHOSIS [None]
  - PAIN IN EXTREMITY [None]
  - RENAL FAILURE [None]
  - RENAL FAILURE CHRONIC [None]
  - RENAL OSTEODYSTROPHY [None]
  - SHOULDER PAIN [None]
  - SKIN LESION [None]
  - SPINAL OSTEOARTHRITIS [None]
